FAERS Safety Report 8487957-7 (Version None)
Quarter: 2012Q3

REPORT INFORMATION
  Report Type: 
  Country: None (occurrence: None)
  Receive Date: 20120705
  Receipt Date: 20120626
  Transmission Date: 20120928
  Serious: Yes (Hospitalization)
  Sender: FDA-Public Use
  Company Number: US-BAYER-2012-055566

PATIENT
  Age: 48 Year
  Sex: Female
  Weight: 78.458 kg

DRUGS (2)
  1. MICROGESTIN FE 1.5/30 [Concomitant]
     Indication: PREMENSTRUAL SYNDROME
     Dosage: 1 DOSE PER DAY
     Route: 048
     Dates: start: 20100602, end: 20100609
  2. YAZ [Suspect]
     Indication: PREMENSTRUAL SYNDROME
     Dosage: UNK
     Dates: start: 20090407, end: 20100602

REACTIONS (7)
  - SKIN DISCOLOURATION [None]
  - PAIN IN EXTREMITY [None]
  - INJURY [None]
  - PAIN [None]
  - PULMONARY EMBOLISM [None]
  - DEEP VEIN THROMBOSIS [None]
  - OEDEMA PERIPHERAL [None]
